FAERS Safety Report 24110525 (Version 1)
Quarter: 2024Q3

REPORT INFORMATION
  Report Type: Report from Study
  Country: US (occurrence: US)
  Receive Date: 20240718
  Receipt Date: 20240718
  Transmission Date: 20241017
  Serious: Yes (Hospitalization)
  Sender: ABBVIE
  Company Number: US-ABBVIE-5843024

PATIENT
  Sex: Female

DRUGS (1)
  1. CREON [Suspect]
     Active Substance: PANCRELIPASE AMYLASE\PANCRELIPASE LIPASE\PANCRELIPASE PROTEASE
     Indication: Product used for unknown indication
     Route: 048
     Dates: start: 2023, end: 20240628

REACTIONS (9)
  - Blood potassium decreased [Not Recovered/Not Resolved]
  - Malabsorption [Not Recovered/Not Resolved]
  - Dyspepsia [Unknown]
  - Abdominal pain [Unknown]
  - Blood pressure increased [Unknown]
  - Abdominal distension [Unknown]
  - Steatorrhoea [Unknown]
  - Malaise [Unknown]
  - Diarrhoea [Not Recovered/Not Resolved]

NARRATIVE: CASE EVENT DATE: 20240101
